FAERS Safety Report 4892077-4 (Version None)
Quarter: 2006Q1

REPORT INFORMATION
  Report Type: 
  Country: None (occurrence: None)
  Receive Date: 20060123
  Receipt Date: 20060109
  Transmission Date: 20060701
  Serious: Yes (Other)
  Sender: FDA-Public Use
  Company Number: IE200601001009

PATIENT
  Age: 16 Month
  Sex: Male

DRUGS (2)
  1. CEFACLOR [Suspect]
     Dosage: 375 MG, ORAL
     Route: 048
     Dates: start: 20051203, end: 20051210
  2. ACETAMINOPHEN [Concomitant]

REACTIONS (2)
  - PURPURA [None]
  - RASH ERYTHEMATOUS [None]
